FAERS Safety Report 9057687 (Version 5)
Quarter: 2013Q2

REPORT INFORMATION
  Report Type: Spontaneous
  Country: FR (occurrence: None)
  Receive Date: 20130117
  Receipt Date: 20130423
  Transmission Date: 20140414
  Serious: Yes (Life-Threatening, Hospitalization, Other)
  Sender: FDA-Public Use
  Company Number: 2013-0176

PATIENT
  Age: 70 Year
  Sex: Female

DRUGS (4)
  1. SOMATULINE L.P. 90MG (LANREOTIDE AUTOGEL)(LANREOTIDE) (LANREOTIDE ACETATE) [Suspect]
     Indication: ACROMEGALY
     Dosage: 90 MG (90 MG, 1 IN 4 WK), SC
     Route: 058
     Dates: start: 20121126, end: 20121126
  2. LERCANIDIPINE (LERCANIDIPINE) [Concomitant]
  3. LEVOTHYROXINE (LEVOTHYROXINE) [Concomitant]
  4. SECTRAL (ACEBUTOLOL HYDROCHLORIDE) [Concomitant]

REACTIONS (4)
  - Pituitary haemorrhage [None]
  - Pulmonary embolism [None]
  - Adrenal insufficiency [None]
  - Hypopituitarism [None]
